FAERS Safety Report 14406368 (Version 1)
Quarter: 2018Q1

REPORT INFORMATION
  Report Type: Spontaneous
  Country: BR (occurrence: BR)
  Receive Date: 20180118
  Receipt Date: 20180118
  Transmission Date: 20180509
  Serious: Yes (Other)
  Sender: FDA-Public Use
  Company Number: BR-GLAXOSMITHKLINE-BR2017GSK065995

PATIENT
  Sex: Female
  Weight: 59 kg

DRUGS (3)
  1. BENLYSTA [Suspect]
     Active Substance: BELIMUMAB
     Indication: SYSTEMIC LUPUS ERYTHEMATOSUS
     Dosage: UNK
     Dates: start: 20170407
  2. BACTRIM [Suspect]
     Active Substance: SULFAMETHOXAZOLE\TRIMETHOPRIM
     Indication: ENTERITIS INFECTIOUS
     Dosage: UNK
  3. BENLYSTA [Suspect]
     Active Substance: BELIMUMAB
     Dosage: 600 MG, UNK

REACTIONS (5)
  - Weight increased [Unknown]
  - Enteritis infectious [Unknown]
  - Circumstance or information capable of leading to medication error [Not Recovered/Not Resolved]
  - Systemic lupus erythematosus [Unknown]
  - Inappropriate schedule of drug administration [Recovered/Resolved]
